FAERS Safety Report 12169231 (Version 2)
Quarter: 2016Q1

REPORT INFORMATION
  Report Type: Spontaneous
  Country: JP (occurrence: JP)
  Receive Date: 20160310
  Receipt Date: 20160318
  Transmission Date: 20160526
  Serious: No
  Sender: FDA-Public Use
  Company Number: JP-BRISTOL-MYERS SQUIBB COMPANY-BMS-2016-018173

PATIENT
  Age: 82 Year
  Sex: Male

DRUGS (1)
  1. ABILIFY [Suspect]
     Active Substance: ARIPIPRAZOLE
     Indication: BEHAVIOURAL AND PSYCHIATRIC SYMPTOMS OF DEMENTIA
     Dosage: 6 MG, QD
     Route: 048
     Dates: end: 20160304

REACTIONS (3)
  - Parkinsonian gait [Recovered/Resolved]
  - Off label use [Unknown]
  - Salivary hypersecretion [Recovered/Resolved]
